FAERS Safety Report 10648196 (Version 1)
Quarter: 2014Q4

REPORT INFORMATION
  Report Type: Other
  Country: US (occurrence: US)
  Receive Date: 20141212
  Receipt Date: 20141212
  Transmission Date: 20150529
  Serious: Yes (Hospitalization)
  Sender: FDA-Public Use
  Company Number: US-ENDO PHARMACEUTICALS INC-AMOX20140049

PATIENT
  Age: 10 Year
  Sex: Male

DRUGS (1)
  1. AMOXICILLIN CAPSULES [Suspect]
     Active Substance: AMOXICILLIN
     Indication: PHARYNGITIS STREPTOCOCCAL
     Dosage: UNKNOWN
     Route: 065

REACTIONS (2)
  - Toxic epidermal necrolysis [Recovered/Resolved with Sequelae]
  - Pulmonary air leakage [Recovered/Resolved]
